FAERS Safety Report 7965140 (Version 4)
Quarter: 2013Q4

REPORT INFORMATION
  Report Type: Spontaneous
  Country: US (occurrence: US)
  Receive Date: 20110527
  Receipt Date: 20131107
  Transmission Date: 20140711
  Serious: Yes (Hospitalization, Other)
  Sender: FDA-Public Use
  Company Number: US-ASTRAZENECA-2011SE30931

PATIENT
  Age: 59 Year
  Sex: Female
  Weight: 104.3 kg

DRUGS (18)
  1. SEROQUEL [Suspect]
     Indication: DEPRESSION
     Route: 048
  2. SEROQUEL [Suspect]
     Indication: BIPOLAR I DISORDER
     Route: 048
  3. SEROQUEL [Suspect]
     Indication: DEPRESSION
     Route: 048
     Dates: start: 2010
  4. SEROQUEL [Suspect]
     Indication: BIPOLAR I DISORDER
     Route: 048
     Dates: start: 2010
  5. SEROQUEL [Suspect]
     Indication: DEPRESSION
     Route: 048
  6. SEROQUEL [Suspect]
     Indication: BIPOLAR I DISORDER
     Route: 048
  7. SEROQUEL [Suspect]
     Indication: DEPRESSION
     Route: 048
     Dates: start: 20110701
  8. SEROQUEL [Suspect]
     Indication: BIPOLAR I DISORDER
     Route: 048
     Dates: start: 20110701
  9. SEROQUEL [Suspect]
     Indication: DEPRESSION
     Route: 048
  10. SEROQUEL [Suspect]
     Indication: BIPOLAR I DISORDER
     Route: 048
  11. SEROQUEL [Suspect]
     Indication: DEPRESSION
     Dosage: GENERIC, 100 MG QD
     Route: 065
  12. SEROQUEL [Suspect]
     Indication: BIPOLAR I DISORDER
     Dosage: GENERIC, 100 MG QD
     Route: 065
  13. SEROQUEL [Suspect]
     Indication: DEPRESSION
     Route: 048
  14. SEROQUEL [Suspect]
     Indication: BIPOLAR I DISORDER
     Route: 048
  15. ZOLOFT [Concomitant]
  16. KLONOPIN [Concomitant]
     Indication: BIPOLAR I DISORDER
  17. KLONOPIN [Concomitant]
     Indication: BIPOLAR I DISORDER
     Dosage: AS REQUIRED
  18. EFFEXOR [Concomitant]
     Indication: BIPOLAR I DISORDER
     Dosage: 75 MG TAKEN ONCE IN AM AND HS

REACTIONS (14)
  - Transient ischaemic attack [Unknown]
  - Spinal fracture [Unknown]
  - Influenza like illness [Unknown]
  - Anxiety [Unknown]
  - Nausea [Unknown]
  - Drug effect increased [Unknown]
  - Nervousness [Unknown]
  - Malaise [Unknown]
  - Somnolence [Unknown]
  - Palpitations [Unknown]
  - Asthenia [Unknown]
  - Vomiting [Unknown]
  - Irritability [Unknown]
  - Drug dose omission [Unknown]
